FAERS Safety Report 15907823 (Version 3)
Quarter: 2019Q4

REPORT INFORMATION
  Report Type: Spontaneous
  Country: US (occurrence: US)
  Receive Date: 20190204
  Receipt Date: 20191224
  Transmission Date: 20200122
  Serious: Yes (Hospitalization, Other)
  Sender: FDA-Public Use
  Company Number: US-SA-2019SA024707

PATIENT
  Age: 34 Year
  Sex: Female

DRUGS (11)
  1. DULOXETINE HCL [Concomitant]
     Active Substance: DULOXETINE HYDROCHLORIDE
  2. VITAMIN D NOS [Concomitant]
     Active Substance: VITAMIN D NOS
  3. LOPRESSOR [Concomitant]
     Active Substance: METOPROLOL TARTRATE
  4. DICYCLOMINE HCL [Concomitant]
     Active Substance: DICYCLOMINE HYDROCHLORIDE
  5. PAROXETINE HCL [Concomitant]
     Active Substance: PAROXETINE HYDROCHLORIDE
  6. CYMBALTA [Concomitant]
     Active Substance: DULOXETINE HYDROCHLORIDE
  7. AUBAGIO [Suspect]
     Active Substance: TERIFLUNOMIDE
     Indication: MULTIPLE SCLEROSIS
     Dosage: 7 MG, QD
     Route: 048
     Dates: start: 20180905
  8. NORCO [Concomitant]
     Active Substance: ACETAMINOPHEN\HYDROCODONE BITARTRATE
  9. DECADRON [Concomitant]
     Active Substance: DEXAMETHASONE
  10. CALCIUM [Concomitant]
     Active Substance: CALCIUM
  11. SERTRALINE HCL [Concomitant]
     Active Substance: SERTRALINE HYDROCHLORIDE

REACTIONS (4)
  - Hospitalisation [Unknown]
  - White matter lesion [Unknown]
  - Hysterectomy [Unknown]
  - Malaise [Unknown]

NARRATIVE: CASE EVENT DATE: 20191113
